FAERS Safety Report 9596298 (Version 2)
Quarter: 2013Q4

REPORT INFORMATION
  Report Type: Spontaneous
  Country: US (occurrence: US)
  Receive Date: 20131004
  Receipt Date: 20131004
  Transmission Date: 20140711
  Serious: Yes (Other)
  Sender: FDA-Public Use
  Company Number: US-BAXTER-2013BAX037775

PATIENT
  Sex: Male

DRUGS (2)
  1. DIANEAL LOW CALCIUM [Suspect]
     Indication: RENAL FAILURE CHRONIC
     Dosage: 3 BAGS
     Route: 033
  2. DIANEAL LOW CALCIUM [Suspect]
     Indication: RENAL FAILURE CHRONIC
     Dosage: 3 BAGS
     Route: 033

REACTIONS (4)
  - Dizziness [Recovering/Resolving]
  - Fall [Recovering/Resolving]
  - Musculoskeletal chest pain [Recovering/Resolving]
  - Asthenia [Unknown]
